FAERS Safety Report 4596136-5 (Version None)
Quarter: 2005Q1

REPORT INFORMATION
  Report Type: 
  Country: None (occurrence: None)
  Receive Date: 20050302
  Receipt Date: 20050118
  Transmission Date: 20050727
  Serious: Yes (Death)
  Sender: FDA-Public Use
  Company Number: CA-ROCHE-392660

PATIENT

DRUGS (2)
  1. ROCEPHIN [Suspect]
     Route: 042
  2. ERYTHROMYCIN [Concomitant]
     Route: 048

REACTIONS (4)
  - ANAEMIA HAEMOLYTIC AUTOIMMUNE [None]
  - DEPRESSED LEVEL OF CONSCIOUSNESS [None]
  - PALLOR [None]
  - RASH [None]
